FAERS Safety Report 5854964-X (Version None)
Quarter: 2008Q3

REPORT INFORMATION
  Report Type: 
  Country: None (occurrence: None)
  Receive Date: 20080822
  Receipt Date: 20080819
  Transmission Date: 20090109
  Serious: Yes (Hospitalization, Disabling)
  Sender: FDA-Public Use
  Company Number: US-MERCK-0609USA01253

PATIENT
  Age: 68 Year
  Sex: Female
  Weight: 50 kg

DRUGS (10)
  1. FOSAMAX [Suspect]
     Indication: OSTEOPOROSIS
     Route: 048
     Dates: start: 19970710, end: 19980315
  2. FOSAMAX [Suspect]
     Route: 048
     Dates: start: 19981207, end: 20060224
  3. FOSAMAX [Suspect]
     Indication: OSTEOPENIA
     Route: 048
     Dates: start: 19970710, end: 19980315
  4. FOSAMAX [Suspect]
     Route: 048
     Dates: start: 19981207, end: 20060224
  5. SYNTHROID [Concomitant]
     Route: 048
  6. VITAMINS (UNSPECIFIED) [Concomitant]
     Route: 065
  7. AMBIEN [Concomitant]
     Route: 048
  8. DELESTROGEN [Concomitant]
     Route: 065
  9. VIOXX [Concomitant]
     Indication: ARTHRITIS
     Route: 065
  10. ZOLOFT [Concomitant]
     Route: 065

REACTIONS (31)
  - ABDOMINAL ADHESIONS [None]
  - ACTINOMYCOTIC SKIN INFECTION [None]
  - ANGIOEDEMA [None]
  - AORTIC CALCIFICATION [None]
  - ARTHRALGIA [None]
  - BLADDER MASS [None]
  - BRONCHITIS [None]
  - CATHETER RELATED INFECTION [None]
  - DEPRESSION [None]
  - DIABETES MELLITUS [None]
  - DYSPNOEA EXERTIONAL [None]
  - HAEMORRHOIDS [None]
  - HEPATIC CIRRHOSIS [None]
  - JAW FRACTURE [None]
  - LETHARGY [None]
  - MALAISE [None]
  - MULTIPLE MYELOMA [None]
  - MYALGIA [None]
  - NECK PAIN [None]
  - OSTEOMYELITIS [None]
  - OSTEONECROSIS [None]
  - OTITIS EXTERNA [None]
  - PSEUDOMONAS INFECTION [None]
  - RADICULOPATHY [None]
  - RHEUMATOID ARTHRITIS [None]
  - SINUSITIS [None]
  - SPINAL OSTEOARTHRITIS [None]
  - STRESS FRACTURE [None]
  - UPPER RESPIRATORY TRACT INFECTION [None]
  - VASCULAR CALCIFICATION [None]
  - WEIGHT DECREASED [None]
